FAERS Safety Report 9646284 (Version 1)
Quarter: 2013Q4

REPORT INFORMATION
  Report Type: Report from Study
  Country: US (occurrence: US)
  Receive Date: 20131025
  Receipt Date: 20131025
  Transmission Date: 20140711
  Serious: Yes (Hospitalization)
  Sender: FDA-Public Use
  Company Number: US-ROCHE-1294130

PATIENT
  Sex: Female

DRUGS (34)
  1. XOLAIR [Suspect]
     Indication: ASTHMA
     Route: 065
  2. VITAMIN C [Concomitant]
  3. ASTELIN [Concomitant]
  4. HUMALOG MIX75/25 [Concomitant]
     Indication: DIABETES MELLITUS
  5. BLACK COHOSH [Concomitant]
  6. SOMA (UNITED STATES) [Concomitant]
  7. CLONIDINE [Concomitant]
  8. CARDIZEM [Concomitant]
  9. CYMBALTA [Concomitant]
  10. NEURONTIN (UNITED STATES) [Concomitant]
     Indication: NEUROPATHY PERIPHERAL
  11. NEXIUM [Concomitant]
  12. DURAGESIC PATCH [Concomitant]
  13. OXYCODON [Concomitant]
     Indication: PAIN
     Route: 065
  14. LASIX [Concomitant]
  15. VITAMIN B12 [Concomitant]
     Route: 065
  16. CULTURELLE [Concomitant]
  17. FOLIC ACID [Concomitant]
  18. FOLATE [Concomitant]
  19. XOPENEX [Concomitant]
     Indication: ASTHMA
  20. ASMANEX [Concomitant]
  21. LORAZEPAM [Concomitant]
  22. L-LYSINE [Concomitant]
  23. MELATONIN [Concomitant]
     Route: 065
  24. AMBIEN [Concomitant]
  25. PROVIGIL (UNITED STATES) [Concomitant]
  26. NASONEX [Concomitant]
  27. SINGULAIR [Concomitant]
  28. VITAMIN E [Concomitant]
  29. OXYTROL [Concomitant]
  30. CRESTOR [Concomitant]
     Route: 065
  31. XARELTO [Concomitant]
     Indication: ANTICOAGULANT THERAPY
  32. PRILOSEC [Concomitant]
  33. EPIPEN [Concomitant]
  34. OXYGEN [Concomitant]
     Route: 065

REACTIONS (5)
  - Foot deformity [Recovering/Resolving]
  - Fall [Recovered/Resolved]
  - Nasopharyngitis [Not Recovered/Not Resolved]
  - Rhinorrhoea [Not Recovered/Not Resolved]
  - Neuropathy peripheral [Not Recovered/Not Resolved]
